FAERS Safety Report 26101139 (Version 1)
Quarter: 2025Q4

REPORT INFORMATION
  Report Type: Report from Study
  Country: EU (occurrence: EU)
  Receive Date: 20251128
  Receipt Date: 20251128
  Transmission Date: 20260118
  Serious: Yes (Other)
  Sender: TEVA
  Company Number: EU-TEVA-VS-3396234

PATIENT
  Age: 46 Year
  Sex: Female

DRUGS (6)
  1. TERIPARATIDE [Suspect]
     Active Substance: TERIPARATIDE
     Indication: Osteoporosis
     Dosage: 20 MCG/ 80MCL
     Route: 065
     Dates: start: 20240221
  2. DIMETHYL FUMARATE [Concomitant]
     Active Substance: DIMETHYL FUMARATE
     Indication: Multiple sclerosis
  3. LIORESAL [Concomitant]
     Active Substance: BACLOFEN
     Indication: Multiple sclerosis
  4. DALFAMPRIDINE [Concomitant]
     Active Substance: DALFAMPRIDINE
     Indication: Multiple sclerosis
     Dosage: ONE IN THE MORNING AND ONE AT NIGHT
  5. CHOLECALCIFEROL [Concomitant]
     Active Substance: CHOLECALCIFEROL
     Indication: Osteoporosis
  6. ESCITALOPRAM [Concomitant]
     Active Substance: ESCITALOPRAM OXALATE
     Indication: Anxiety
     Dosage: ONE IN THE MORNING

REACTIONS (5)
  - Osteoporosis [Unknown]
  - Injection site haemorrhage [Recovered/Resolved]
  - Drug ineffective [Unknown]
  - Ephelides [Not Recovered/Not Resolved]
  - Injection site bruising [Recovered/Resolved]
